FAERS Safety Report 7609157-2 (Version None)
Quarter: 2011Q3

REPORT INFORMATION
  Report Type: 
  Country: None (occurrence: None)
  Receive Date: 20110714
  Receipt Date: 20110222
  Transmission Date: 20111222
  Serious: Yes (Disabling)
  Sender: FDA-Public Use
  Company Number: CA-BAYER-2011-017229

PATIENT
  Age: 41 Year
  Sex: Female

DRUGS (1)
  1. MIRENA [Suspect]
     Indication: MENORRHAGIA
     Dosage: 20 MCG/24HR, CONT
     Route: 015
     Dates: start: 20110211

REACTIONS (6)
  - VAGINAL HAEMORRHAGE [None]
  - PAIN [None]
  - DISCOMFORT [None]
  - ACTIVITIES OF DAILY LIVING IMPAIRED [None]
  - MENORRHAGIA [None]
  - ABDOMINAL PAIN [None]
